FAERS Safety Report 6030650-0 (Version None)
Quarter: 2008Q4

REPORT INFORMATION
  Report Type: 
  Country: None (occurrence: None)
  Receive Date: 20081222
  Receipt Date: 20080910
  Transmission Date: 20090506
  Serious: No
  Sender: FDA-Public Use
  Company Number: US-WYE-H05948908

PATIENT
  Sex: Female

DRUGS (1)
  1. PRISTIQ [Suspect]
     Dates: start: 20080801

REACTIONS (6)
  - AGITATION [None]
  - CRYING [None]
  - EYE PRURITUS [None]
  - HYPERSENSITIVITY [None]
  - LACRIMATION INCREASED [None]
  - PRURITUS [None]
